FAERS Safety Report 4883562-X (Version None)
Quarter: 2006Q1

REPORT INFORMATION
  Report Type: 
  Country: None (occurrence: None)
  Receive Date: 20060118
  Receipt Date: 20060106
  Transmission Date: 20060701
  Serious: Yes (Hospitalization, Disabling)
  Sender: FDA-Public Use
  Company Number: US-MERCK-0601USA00924

PATIENT
  Age: 59 Year
  Sex: Female
  Weight: 84 kg

DRUGS (6)
  1. VIOXX [Suspect]
     Indication: OSTEOARTHRITIS
     Route: 048
     Dates: start: 20010524, end: 20041001
  2. COUMADIN [Concomitant]
     Route: 065
  3. ZOCOR [Concomitant]
     Route: 065
  4. NEXIUM [Concomitant]
     Route: 065
  5. DIOVAN [Concomitant]
     Route: 065
  6. ASTELIN [Concomitant]
     Route: 065

REACTIONS (4)
  - ATRIAL FIBRILLATION [None]
  - CEREBROVASCULAR ACCIDENT [None]
  - JOINT INJURY [None]
  - ROTATOR CUFF SYNDROME [None]
